FAERS Safety Report 11796094 (Version 1)
Quarter: 2015Q4

REPORT INFORMATION
  Report Type: Report from Study
  Country: EC (occurrence: EC)
  Receive Date: 20151203
  Receipt Date: 20151203
  Transmission Date: 20160305
  Serious: Yes (Death, Hospitalization)
  Sender: FDA-Public Use
  Company Number: EC-ROCHE-1639726

PATIENT
  Age: 56 Year
  Sex: Male

DRUGS (3)
  1. AMLODIPINE [Concomitant]
     Active Substance: AMLODIPINE BESYLATE
     Indication: HYPERTENSION
     Route: 048
  2. AVASTIN [Suspect]
     Active Substance: BEVACIZUMAB
     Indication: LUNG NEOPLASM MALIGNANT
     Dosage: LAST DOSE RECEIVED ON 13/AUG/2015
     Route: 042
     Dates: start: 201411, end: 20150813
  3. LOSARTAN. [Concomitant]
     Active Substance: LOSARTAN
     Indication: HYPERTENSION
     Route: 048

REACTIONS (5)
  - Abdominal pain [Fatal]
  - Vomiting [Fatal]
  - Infarction [Fatal]
  - Gait disturbance [Fatal]
  - Pleural effusion [Fatal]

NARRATIVE: CASE EVENT DATE: 20150917
